FAERS Safety Report 20887230 (Version 1)
Quarter: 2022Q2

REPORT INFORMATION
  Report Type: Spontaneous
  Country: US (occurrence: US)
  Receive Date: 20220528
  Receipt Date: 20220528
  Transmission Date: 20220721
  Serious: No
  Sender: FDA-Public Use
  Company Number: US-TEVA-2022-US-2036282

PATIENT
  Age: 42 Year
  Sex: Male

DRUGS (9)
  1. TESTOSTERONE [Suspect]
     Active Substance: TESTOSTERONE
     Indication: Product used for unknown indication
     Route: 065
  2. KORLYM [Suspect]
     Active Substance: MIFEPRISTONE
     Indication: Cushing^s syndrome
     Dosage: QD
     Route: 048
     Dates: start: 20190129, end: 20190225
  3. KORLYM [Suspect]
     Active Substance: MIFEPRISTONE
     Route: 048
     Dates: start: 20190226, end: 202001
  4. KORLYM [Suspect]
     Active Substance: MIFEPRISTONE
     Route: 048
     Dates: start: 20210129
  5. KORLYM [Suspect]
     Active Substance: MIFEPRISTONE
     Route: 048
  6. OZEMPIC [Concomitant]
     Active Substance: SEMAGLUTIDE
     Route: 065
  7. NOVOLOG [Concomitant]
     Active Substance: INSULIN ASPART
     Route: 065
  8. LISINOPRIL [Concomitant]
     Active Substance: LISINOPRIL
     Route: 065
  9. FARXIGA [Concomitant]
     Active Substance: DAPAGLIFLOZIN PROPANEDIOL
     Route: 065

REACTIONS (2)
  - Blood testosterone increased [Unknown]
  - Glycosylated haemoglobin increased [Unknown]
